FAERS Safety Report 9349654 (Version 2)
Quarter: 2013Q3

REPORT INFORMATION
  Report Type: Spontaneous
  Country: JP (occurrence: None)
  Receive Date: 20130611
  Receipt Date: 20130826
  Transmission Date: 20140515
  Serious: Yes (Hospitalization)
  Sender: FDA-Public Use
  Company Number: DSJ-2013-12702

PATIENT
  Age: 75 Year
  Sex: Female
  Weight: 48 kg

DRUGS (5)
  1. OLMETEC (OLMESARTAN MEDOXOMIL) (TABLET) (OLMESARTAN MEDOXOMIL) [Suspect]
     Indication: HYPERTENSION
     Route: 048
     Dates: start: 20130315, end: 20130326
  2. CRESTOR [Concomitant]
  3. ALINAMIN-F [Concomitant]
  4. METHYCOBAL [Concomitant]
  5. CARNACULIN [Concomitant]

REACTIONS (4)
  - Platelet count decreased [None]
  - Petechiae [None]
  - Epistaxis [None]
  - Mouth haemorrhage [None]
